FAERS Safety Report 21644173 (Version 3)
Quarter: 2022Q4

REPORT INFORMATION
  Report Type: Report from Study
  Country: FR (occurrence: FR)
  Receive Date: 20221125
  Receipt Date: 20221221
  Transmission Date: 20230113
  Serious: Yes (Other)
  Sender: FDA-Public Use
  Company Number: FR-VIIV HEALTHCARE LIMITED-FR2022EME172907

PATIENT

DRUGS (4)
  1. CABOTEGRAVIR [Suspect]
     Active Substance: CABOTEGRAVIR
     Indication: HIV test positive
     Dosage: 1 DF (1 DOSE OF EACH)
     Route: 030
     Dates: start: 20220302
  2. CABOTEGRAVIR [Suspect]
     Active Substance: CABOTEGRAVIR
     Dosage: 1 DF (1 DOSE OF EACH)
     Route: 030
     Dates: start: 20221118
  3. RILPIVIRINE [Suspect]
     Active Substance: RILPIVIRINE
     Indication: HIV test positive
     Dosage: 1 DF (1 DOSE OF EACH)
     Route: 030
     Dates: start: 20220302
  4. RILPIVIRINE [Suspect]
     Active Substance: RILPIVIRINE
     Dosage: 1 DF (1 DOSE OF EACH)
     Route: 030
     Dates: start: 20221118

REACTIONS (3)
  - Infarction [Recovered/Resolved]
  - Injection site pain [Not Recovered/Not Resolved]
  - Injection site mass [Not Recovered/Not Resolved]

NARRATIVE: CASE EVENT DATE: 20221123
